FAERS Safety Report 7278109-7 (Version None)
Quarter: 2011Q1

REPORT INFORMATION
  Report Type: 
  Country: None (occurrence: None)
  Receive Date: 20110207
  Receipt Date: 20110126
  Transmission Date: 20110831
  Serious: Yes (Death, Life-Threatening, Hospitalization, Disabling)
  Sender: FDA-Public Use
  Company Number: JP-BAYER-201013998BYL

PATIENT
  Sex: Male
  Weight: 80 kg

DRUGS (12)
  1. LASIX [Concomitant]
     Dosage: 80 MG, QD
     Dates: start: 20100723, end: 20100803
  2. NEXAVAR [Suspect]
     Indication: HEPATIC NEOPLASM MALIGNANT
     Dosage: 400 MG, QD
     Route: 048
     Dates: start: 20100629, end: 20100721
  3. LIVACT [Concomitant]
     Dosage: DAILY DOSE 12.45 G
     Route: 048
     Dates: end: 20100803
  4. LENDORMIN [Concomitant]
     Dosage: DAILY DOSE .25 MG
     Route: 048
     Dates: start: 20100630, end: 20100803
  5. PORTOLAC [Concomitant]
     Dosage: DAILY DOSE 18 G
     Route: 048
     Dates: start: 20100721, end: 20100803
  6. URSO 250 [Concomitant]
     Dosage: 900 MG, QD
     Route: 048
     Dates: end: 20100803
  7. LASIX [Concomitant]
     Dosage: DAILY DOSE 40 MG
     Route: 048
     Dates: start: 20100721, end: 20100722
  8. MYSLEE [Concomitant]
     Dosage: DAILY DOSE 5 MG
     Route: 048
     Dates: end: 20100803
  9. ALDACTONE [Concomitant]
     Dosage: DAILY DOSE 50 MG
     Route: 048
     Dates: start: 20100721, end: 20100803
  10. CODEINE SULFATE [Concomitant]
     Dosage: DAILY DOSE 60 MG
     Route: 048
     Dates: start: 20100723, end: 20100803
  11. PARIET [Concomitant]
     Dosage: 20 MG, QD
     Route: 048
     Dates: end: 20100803
  12. LOXONIN [Concomitant]
     Dosage: DAILY DOSE 180 MG
     Route: 048
     Dates: end: 20100803

REACTIONS (4)
  - HEPATIC FUNCTION ABNORMAL [None]
  - CEREBRAL HAEMORRHAGE [None]
  - RESPIRATORY FAILURE [None]
  - HEPATIC NEOPLASM MALIGNANT [None]
